FAERS Safety Report 15707222 (Version 1)
Quarter: 2018Q4

REPORT INFORMATION
  Report Type: Spontaneous
  Country: JP (occurrence: JP)
  Receive Date: 20181210
  Receipt Date: 20181210
  Transmission Date: 20190205
  Serious: Yes (Hospitalization)
  Sender: FDA-Public Use
  Company Number: JP-NOVAST LABORATORIES, LTD-JP-2018NOV000417

PATIENT
  Age: 65 Year
  Sex: Female

DRUGS (1)
  1. CARISOPRODOL\ASPIRIN [Suspect]
     Active Substance: ASPIRIN\CARISOPRODOL
     Indication: BACK PAIN
     Dosage: 52.8 G (TOTAL AMOUNT), UNK

REACTIONS (2)
  - Toxicity to various agents [Unknown]
  - Acute respiratory distress syndrome [Unknown]
